FAERS Safety Report 6275570-1 (Version None)
Quarter: 2009Q3

REPORT INFORMATION
  Report Type: 
  Country: None (occurrence: None)
  Receive Date: 20090721
  Receipt Date: 20090714
  Transmission Date: 20100115
  Serious: Yes (Death, Other)
  Sender: FDA-Public Use
  Company Number: DE-CELGENEUS-062-21880-09070446

PATIENT
  Sex: Male

DRUGS (1)
  1. REVLIMID [Suspect]
     Indication: MANTLE CELL LYMPHOMA REFRACTORY
     Route: 048
     Dates: start: 20080901, end: 20081001

REACTIONS (2)
  - MANTLE CELL LYMPHOMA REFRACTORY [None]
  - TREATMENT FAILURE [None]
